FAERS Safety Report 5002095-3 (Version None)
Quarter: 2006Q2

REPORT INFORMATION
  Report Type: 
  Country: None (occurrence: None)
  Receive Date: 20060515
  Receipt Date: 20060508
  Transmission Date: 20061013
  Serious: Yes (Disabling)
  Sender: FDA-Public Use
  Company Number: GB-ROCHE-447275

PATIENT
  Age: 54 Year
  Sex: Female
  Weight: 56 kg

DRUGS (4)
  1. BONIVA [Suspect]
     Indication: OSTEOPOROSIS
     Route: 048
     Dates: start: 20051031, end: 20060320
  2. PAROXETINE [Concomitant]
     Indication: BIPOLAR DISORDER
     Route: 048
  3. PRIADEL [Concomitant]
     Indication: BIPOLAR DISORDER
     Route: 048
  4. FENTANYL [Concomitant]
     Indication: BACK PAIN
     Route: 062

REACTIONS (5)
  - ANOREXIA [None]
  - ARTHRALGIA [None]
  - MUSCULOSKELETAL STIFFNESS [None]
  - MYALGIA [None]
  - PARAESTHESIA [None]
